FAERS Safety Report 7416010-6 (Version None)
Quarter: 2011Q2

REPORT INFORMATION
  Report Type: 
  Country: None (occurrence: None)
  Receive Date: 20110414
  Receipt Date: 20110406
  Transmission Date: 20111010
  Serious: Yes (Other)
  Sender: FDA-Public Use
  Company Number: US-JNJFOC-20110405819

PATIENT
  Age: 36 Year
  Sex: Female
  Weight: 48.99 kg

DRUGS (2)
  1. ZYRTEC [Suspect]
     Indication: DERMATITIS ALLERGIC
     Route: 048
  2. ZYRTEC [Suspect]
     Route: 048

REACTIONS (3)
  - DEPENDENCE [None]
  - OFF LABEL USE [None]
  - RASH [None]
